FAERS Safety Report 10379229 (Version 2)
Quarter: 2014Q3

REPORT INFORMATION
  Report Type: Spontaneous
  Country: US (occurrence: US)
  Receive Date: 20140812
  Receipt Date: 20140812
  Transmission Date: 20150326
  Serious: Yes (Other)
  Sender: FDA-Public Use
  Company Number: US-BRISTOL-MYERS SQUIBB COMPANY-19193911

PATIENT
  Age: 6 Year
  Sex: Female

DRUGS (2)
  1. REYATAZ [Suspect]
     Active Substance: ATAZANAVIR SULFATE
     Indication: HIV INFECTION
     Route: 048
     Dates: start: 20130617
  2. NORVIR [Concomitant]
     Active Substance: RITONAVIR
     Route: 048

REACTIONS (2)
  - Blood bilirubin increased [Unknown]
  - Ocular icterus [Recovered/Resolved]

NARRATIVE: CASE EVENT DATE: 20130803
